FAERS Safety Report 7540777-X (Version None)
Quarter: 2011Q2

REPORT INFORMATION
  Report Type: 
  Country: None (occurrence: None)
  Receive Date: 20110610
  Receipt Date: 20110531
  Transmission Date: 20111010
  Serious: Yes (Other)
  Sender: FDA-Public Use
  Company Number: ES-ROCHE-780160

PATIENT
  Age: 39 Year
  Sex: Male
  Weight: 39 kg

DRUGS (5)
  1. FUROSEMIDE [Concomitant]
     Indication: HYPERTENSION
     Route: 048
     Dates: start: 20100101, end: 20110306
  2. ZYLORIC 100 [Concomitant]
     Indication: GOUT
     Route: 048
     Dates: start: 20100101, end: 20110314
  3. TAMIFLU [Suspect]
     Indication: INFLUENZA
     Route: 048
     Dates: start: 20110306, end: 20110309
  4. LEVOFLOXACIN [Suspect]
     Indication: PNEUMONIA
     Route: 042
     Dates: start: 20110305, end: 20110308
  5. ACOVIL [Concomitant]
     Indication: HYPERTENSION
     Route: 048
     Dates: start: 20100101, end: 20110307

REACTIONS (2)
  - TRANSAMINASES INCREASED [None]
  - CHOLESTASIS [None]
